FAERS Safety Report 7200973-8 (Version None)
Quarter: 2010Q4

REPORT INFORMATION
  Report Type: 
  Country: None (occurrence: None)
  Receive Date: 20101228
  Receipt Date: 20101217
  Transmission Date: 20110411
  Serious: Yes (Other)
  Sender: FDA-Public Use
  Company Number: FR-MERCK-1012FRA00112

PATIENT
  Age: 73 Year
  Sex: Female

DRUGS (4)
  1. VYTORIN [Suspect]
     Indication: HYPERCHOLESTEROLAEMIA
     Route: 048
     Dates: start: 20080101
  2. AVOCADO-SOYBEAN UNSAPONIFIABLE LIPIDS [Concomitant]
     Route: 048
     Dates: start: 20000101
  3. CHONDROITIN SULFATE SODIUM [Concomitant]
     Route: 048
     Dates: start: 20000101
  4. PANTOPRAZOLE SODIUM [Concomitant]
     Route: 048
     Dates: start: 20080101

REACTIONS (1)
  - CUTANEOUS LUPUS ERYTHEMATOSUS [None]
